FAERS Safety Report 11129432 (Version 1)
Quarter: 2015Q2

REPORT INFORMATION
  Report Type: Spontaneous
  Country: FR (occurrence: FR)
  Receive Date: 20150521
  Receipt Date: 20150521
  Transmission Date: 20150821
  Serious: Yes (Hospitalization)
  Sender: FDA-Public Use
  Company Number: FR-BAYER-2015-254310

PATIENT
  Age: 57 Year
  Sex: Male

DRUGS (2)
  1. TAZOCILLINE [Suspect]
     Active Substance: PIPERACILLIN SODIUM\TAZOBACTAM SODIUM
     Dosage: DAILY DOSE 12 G
     Route: 042
     Dates: start: 20150317, end: 20150408
  2. CIFLOX [Suspect]
     Active Substance: CIPROFLOXACIN
     Dosage: DAILY DOSE 1 G
     Route: 048
     Dates: start: 20150330, end: 20150408

REACTIONS (2)
  - Neutropenia [Recovered/Resolved]
  - Leukopenia [Recovered/Resolved]

NARRATIVE: CASE EVENT DATE: 20150408
